FAERS Safety Report 8166862-X (Version None)
Quarter: 2012Q1

REPORT INFORMATION
  Report Type: 
  Country: None (occurrence: None)
  Receive Date: 20120227
  Receipt Date: 20120215
  Transmission Date: 20120608
  Serious: Yes (Hospitalization)
  Sender: FDA-Public Use
  Company Number: FR-SANOFI-AVENTIS-2012SA009988

PATIENT
  Age: 65 Year
  Sex: Female

DRUGS (2)
  1. ALL OTHER THERAPEUTIC PRODUCTS [Concomitant]
  2. RIFATER [Suspect]
     Route: 048
     Dates: start: 20111216, end: 20120113

REACTIONS (8)
  - STOMATITIS [None]
  - PYREXIA [None]
  - RASH PUSTULAR [None]
  - CYTOLYTIC HEPATITIS [None]
  - DRUG RASH WITH EOSINOPHILIA AND SYSTEMIC SYMPTOMS [None]
  - RASH [None]
  - EOSINOPHILIA [None]
  - MOUTH ULCERATION [None]
